FAERS Safety Report 7060000 (Version 12)
Quarter: 2012Q4

REPORT INFORMATION
  Report Type: 
  Country: CA (occurrence: CA)
  Receive Date: 20090723
  Receipt Date: 20121111
  Transmission Date: 20130627
  Serious: Yes (Death, Life-Threatening, Hospitalization, Other)
  Sender: FDA-Public Use
  Company Number: PHHY2009CA19658

PATIENT
  Sex: Female
  Weight: 49.34 kg

DRUGS (16)
  1. SANDOSTATIN LAR [Suspect]
     Indication: CARCINOID TUMOUR
     Dosage: 20 mg, every 3 weeks
     Route: 030
     Dates: start: 20071201
  2. SANDOSTATIN LAR [Suspect]
     Dosage: 30 mg, QMO
     Dates: start: 2008
  3. SANDOSTATIN LAR [Suspect]
     Dosage: 40 mg, TIW
     Route: 030
  4. SANDOSTATIN LAR [Suspect]
     Dosage: 20 mg
     Dates: end: 20100412
  5. MS CONTIN [Concomitant]
     Dosage: 75 mg, BID
     Route: 065
  6. FUROSEMIDE [Concomitant]
     Dosage: 2 mg, BID
     Route: 065
  7. RITALIN [Concomitant]
     Dosage: 10 mg, QD
     Route: 065
  8. SYNTHROID [Concomitant]
     Route: 065
  9. LIPITOR [Concomitant]
     Route: 065
  10. ATENOLOL [Concomitant]
     Route: 065
  11. PAXIL [Concomitant]
     Route: 065
  12. COLACE [Concomitant]
     Route: 065
  13. NITRO [Concomitant]
     Route: 065
  14. ASA [Concomitant]
     Route: 065
  15. INDAPAMIDE [Concomitant]
     Route: 065
  16. COZAAR [Concomitant]

REACTIONS (24)
  - Terminal state [Fatal]
  - Phlebitis [Unknown]
  - Pulmonary embolism [Unknown]
  - Renal failure [Unknown]
  - Weight decreased [Unknown]
  - Eye haemorrhage [Unknown]
  - Blood pressure decreased [Unknown]
  - Blood pressure increased [Unknown]
  - General physical health deterioration [Unknown]
  - Malignant neoplasm progression [Recovering/Resolving]
  - Metastases to liver [Unknown]
  - Abdominal pain upper [Unknown]
  - Pain [Recovering/Resolving]
  - Skin discolouration [Unknown]
  - Somnolence [Unknown]
  - Asthenia [Unknown]
  - Decreased appetite [Unknown]
  - Injection site pain [Unknown]
  - Nausea [Unknown]
  - Abdominal pain [Unknown]
  - Heart rate decreased [Unknown]
  - Pain in extremity [Unknown]
  - Musculoskeletal pain [Unknown]
  - Fatigue [Unknown]
